FAERS Safety Report 15443833 (Version 1)
Quarter: 2018Q3

REPORT INFORMATION
  Report Type: Spontaneous
  Country: CA (occurrence: CA)
  Receive Date: 20180928
  Receipt Date: 20180928
  Transmission Date: 20181010
  Serious: Yes (Other)
  Sender: FDA-Public Use
  Company Number: CA-PFIZER INC-2018330765

PATIENT
  Age: 21 Year
  Sex: Male

DRUGS (12)
  1. CORTISONE [Concomitant]
     Active Substance: CORTISONE\HYDROCORTISONE
     Dosage: UNK UNK, 1X/DAY (BEDTIME)
  2. BENADRYL [Suspect]
     Active Substance: DIPHENHYDRAMINE HYDROCHLORIDE
     Indication: RASH
  3. VENOFER [Concomitant]
     Active Substance: IRON SUCROSE
     Dosage: FOR 3 DAYS
     Dates: start: 20180722
  4. DALTEPARIN [Concomitant]
     Active Substance: DALTEPARIN
     Dosage: UNK UNK, DAILY
     Route: 058
     Dates: start: 20180722
  5. 5?ASA [Concomitant]
     Active Substance: MESALAMINE
     Dosage: 4 DF, (MORNING)
  6. SOLU?MEDROL [Suspect]
     Active Substance: METHYLPREDNISOLONE SODIUM SUCCINATE
     Indication: URTICARIA
     Dosage: 100 MG, UNK
     Route: 042
     Dates: start: 20180722, end: 20180814
  7. SOLU?MEDROL [Suspect]
     Active Substance: METHYLPREDNISOLONE SODIUM SUCCINATE
     Indication: RASH
  8. BENADRYL [Suspect]
     Active Substance: DIPHENHYDRAMINE HYDROCHLORIDE
     Indication: URTICARIA
     Dosage: 50 MG, SINGLE
     Route: 048
     Dates: start: 20180814, end: 20180814
  9. INFLECTRA [Concomitant]
     Active Substance: INFLIXIMAB-DYYB
     Indication: COLITIS ULCERATIVE
     Dosage: 400 MG ((5.7 MG/KG)), WEEK 2 AND 6 THEN EVERY 8 WEEKS
     Route: 042
     Dates: start: 20180727
  10. INFLECTRA [Concomitant]
     Active Substance: INFLIXIMAB-DYYB
     Dosage: 400 MG (5.7 MG/KG), WEEK 2 AND 6 THEN EVERY 8 WEEKS
     Route: 042
     Dates: start: 20180730
  11. INFLECTRA [Concomitant]
     Active Substance: INFLIXIMAB-DYYB
     Dosage: 400 MG (5.7 MG/KG), WEEK 2 AND 6 THEN EVERY 8 WEEKS
     Route: 042
     Dates: start: 20180814
  12. PREDNISONE. [Concomitant]
     Active Substance: PREDNISONE
     Dosage: 40 MG, DAILY, TAPERING BY 5 MG PER WEEK UNTIL OFF.
     Route: 048

REACTIONS (5)
  - Clostridium difficile colitis [Unknown]
  - Blood albumin decreased [Unknown]
  - Drug ineffective [Recovering/Resolving]
  - Rash [Unknown]
  - Platelet count increased [Unknown]

NARRATIVE: CASE EVENT DATE: 20180724
